FAERS Safety Report 7942755-5 (Version None)
Quarter: 2011Q4

REPORT INFORMATION
  Report Type: 
  Country: None (occurrence: None)
  Receive Date: 20111128
  Receipt Date: 20111005
  Transmission Date: 20120403
  Serious: No
  Sender: FDA-Public Use
  Company Number: US-BAYER-2011-096289

PATIENT
  Age: 71 Year
  Sex: Female
  Weight: 47 kg

DRUGS (4)
  1. MULTI-VITAMIN [Concomitant]
  2. ALEVE (CAPLET) [Suspect]
     Indication: MYALGIA
     Dosage: 1 DF, BID
     Route: 048
     Dates: start: 20110928
  3. LUBRIDERM [Suspect]
  4. DIOVAN [Concomitant]

REACTIONS (1)
  - RASH [None]
